FAERS Safety Report 8364328-5 (Version None)
Quarter: 2012Q2

REPORT INFORMATION
  Report Type: 
  Country: None (occurrence: None)
  Receive Date: 20120516
  Receipt Date: 20120514
  Transmission Date: 20120825
  Serious: No
  Sender: FDA-Public Use
  Company Number: US-PFIZER INC-2012089652

PATIENT
  Sex: Female
  Weight: 53.061 kg

DRUGS (1)
  1. EFFEXOR [Suspect]
     Dosage: UNK
     Dates: start: 20060101, end: 20060101

REACTIONS (5)
  - HEAD TITUBATION [None]
  - HOT FLUSH [None]
  - MEMORY IMPAIRMENT [None]
  - SENSORY DISTURBANCE [None]
  - DISTURBANCE IN ATTENTION [None]
